FAERS Safety Report 26065929 (Version 1)
Quarter: 2025Q4

REPORT INFORMATION
  Report Type: Spontaneous
  Country: US (occurrence: None)
  Receive Date: 20251119
  Receipt Date: 20251119
  Transmission Date: 20260118
  Serious: Yes (Life-Threatening, Hospitalization)
  Sender: FDA-CTU
  Company Number: None

PATIENT
  Age: 44 Year
  Sex: Male
  Weight: 78.2 kg

DRUGS (1)
  1. SULFAMETHOXAZOLE\TRIMETHOPRIM [Suspect]
     Active Substance: SULFAMETHOXAZOLE\TRIMETHOPRIM
     Dates: start: 20251111, end: 20251114

REACTIONS (7)
  - Rash [None]
  - Oral mucosal eruption [None]
  - Stevens-Johnson syndrome [None]
  - Blister [None]
  - Lip ulceration [None]
  - Mouth ulceration [None]
  - Drug hypersensitivity [None]

NARRATIVE: CASE EVENT DATE: 20251114
